FAERS Safety Report 6077139-0 (Version None)
Quarter: 2009Q1

REPORT INFORMATION
  Report Type: 
  Country: None (occurrence: None)
  Receive Date: 20090213
  Receipt Date: 20090205
  Transmission Date: 20090719
  Serious: Yes (Hospitalization)
  Sender: FDA-Public Use
  Company Number: US-AVENTIS-200910963US

PATIENT
  Sex: Female

DRUGS (9)
  1. LANTUS [Suspect]
     Route: 058
     Dates: start: 20060101
  2. OPTICLIK (INSULIN INJECTION PEN) [Suspect]
  3. METOPROLOL TARTRATE [Concomitant]
     Dosage: DOSE: UNK
  4. HUMALOG [Concomitant]
     Route: 058
  5. GABAPENTIN [Concomitant]
     Dosage: DOSE: UNK
  6. LEVOXYL [Concomitant]
     Dosage: DOSE: UNK
  7. LINOPRIL [Concomitant]
     Dosage: DOSE: UNK
  8. ASPIRIN [Concomitant]
     Dosage: DOSE: UNK
  9. HYDROCHLOROTHIAZIDE [Concomitant]
     Dosage: DOSE: UNK

REACTIONS (2)
  - BLINDNESS [None]
  - CEREBROVASCULAR ACCIDENT [None]
